FAERS Safety Report 8510699-6 (Version None)
Quarter: 2012Q3

REPORT INFORMATION
  Report Type: 
  Country: None (occurrence: None)
  Receive Date: 20120716
  Receipt Date: 20120705
  Transmission Date: 20120928
  Serious: Yes (Death, Hospitalization, Other)
  Sender: FDA-Public Use
  Company Number: FR-009507513-2012SP031038

PATIENT

DRUGS (11)
  1. IXEL [Concomitant]
     Indication: PRURITUS
     Dosage: 50 MG, QD
     Dates: start: 20090101
  2. PROMACTA [Concomitant]
     Indication: THROMBOCYTOPENIA
     Dosage: 25 MG, QD
     Dates: start: 20090604
  3. PEGASYS [Suspect]
     Indication: HEPATITIS C
     Dosage: 180 A?G, QW
     Dates: start: 20120430, end: 20120606
  4. COPEGUS [Suspect]
     Indication: HEPATITIS C
     Dosage: 1200 MG, QD
     Dates: start: 20120430, end: 20120606
  5. DELURSAN [Concomitant]
     Indication: PRODUCT USED FOR UNKNOWN INDICATION
  6. ABILIFY [Concomitant]
     Indication: DEPRESSION
     Dosage: 5 MG, QD
     Dates: start: 20100529
  7. VITAMIN D [Concomitant]
     Indication: VITAMIN D DEFICIENCY
     Dosage: 30000 IU, QOW
  8. NEUPOGEN [Concomitant]
     Indication: NEUTROPENIA
     Dosage: 30000 IU, QW
     Dates: start: 20090604
  9. BOCEPREVIR [Suspect]
     Indication: HEPATITIS C
     Dosage: 800 MG, TID
     Dates: start: 20120529, end: 20120606
  10. ALDACTONE [Concomitant]
     Indication: HEPATIC CIRRHOSIS
     Dosage: 75 MG, QD
     Dates: start: 20100421
  11. LASIX [Concomitant]
     Indication: HEPATIC CIRRHOSIS
     Dosage: 40 MG, QD
     Dates: start: 20100421

REACTIONS (6)
  - VOMITING [None]
  - GENERAL PHYSICAL HEALTH DETERIORATION [None]
  - PYREXIA [None]
  - ASTHENIA [None]
  - NEUTROPENIA [None]
  - LEUKOPENIA [None]
